FAERS Safety Report 8344420-1 (Version None)
Quarter: 2012Q2

REPORT INFORMATION
  Report Type: 
  Country: None (occurrence: None)
  Receive Date: 20120508
  Receipt Date: 20120502
  Transmission Date: 20120825
  Serious: Yes (Hospitalization)
  Sender: FDA-Public Use
  Company Number: US-BAYER-2011-009256

PATIENT
  Age: 26 Year
  Sex: Female
  Weight: 93 kg

DRUGS (2)
  1. YASMIN [Suspect]
     Dosage: UNK
     Dates: start: 20060601, end: 20060701
  2. DROSPIRENONE AND ETHINYL ESTRADIOL [Suspect]
     Dosage: 1 U, QD
     Route: 048
     Dates: start: 20081201, end: 20100101

REACTIONS (3)
  - CHOLELITHIASIS [None]
  - PAIN [None]
  - CHOLECYSTITIS CHRONIC [None]
